FAERS Safety Report 6310087-7 (Version None)
Quarter: 2009Q3

REPORT INFORMATION
  Report Type: 
  Country: None (occurrence: None)
  Receive Date: 20090811
  Receipt Date: 20090602
  Transmission Date: 20100115
  Serious: Yes (Hospitalization)
  Sender: FDA-Public Use
  Company Number: IMP_04385_2009

PATIENT
  Sex: Female
  Weight: 61.2356 kg

DRUGS (1)
  1. CLARITIN-D [Suspect]
     Indication: SEASONAL ALLERGY
     Dosage: 1 DF BIF,  1 PILL AT 10 AM AND 1 PILL AT 11PM ( 03-MAY-2009); 1 PILL AT ~10 AM - 11AM (04-MAY-2009)
     Dates: start: 20090503, end: 20090504

REACTIONS (3)
  - FEELING ABNORMAL [None]
  - HYPERSENSITIVITY [None]
  - URTICARIA [None]
